FAERS Safety Report 24830290 (Version 1)
Quarter: 2025Q1

REPORT INFORMATION
  Report Type: Report from Study
  Country: US (occurrence: US)
  Receive Date: 20250110
  Receipt Date: 20250110
  Transmission Date: 20250409
  Serious: Yes (Death, Hospitalization)
  Sender: BAYER HEALTHCARE PHARMACEUTICALS INC.
  Company Number: US-BAYER-2024A152575

PATIENT
  Sex: Male
  Weight: 72.562 kg

DRUGS (15)
  1. ADEMPAS [Suspect]
     Active Substance: RIOCIGUAT
     Indication: Pulmonary arterial hypertension
     Dates: start: 20240809
  2. ADEMPAS [Suspect]
     Active Substance: RIOCIGUAT
     Indication: Pulmonary arterial hypertension
     Dosage: 1.5 MG, TID
     Route: 048
  3. WATER [Concomitant]
     Active Substance: WATER
  4. SODIUM CHLORIDE [Concomitant]
     Active Substance: SODIUM CHLORIDE
  5. SODIUM CHLORIDE [Concomitant]
     Active Substance: SODIUM CHLORIDE
  6. VITAMINS [Concomitant]
     Active Substance: VITAMINS
  7. LASIX [Concomitant]
     Active Substance: FUROSEMIDE
  8. LYRICA [Concomitant]
     Active Substance: PREGABALIN
  9. CARDIZEM CD [Concomitant]
     Active Substance: DILTIAZEM HYDROCHLORIDE
  10. VELETRI [Concomitant]
     Active Substance: EPOPROSTENOL
  11. LETAIRIS [Concomitant]
     Active Substance: AMBRISENTAN
  12. SYMBICORT [Concomitant]
     Active Substance: BUDESONIDE\FORMOTEROL FUMARATE DIHYDRATE
  13. ASPIRIN [Concomitant]
     Active Substance: ASPIRIN
  14. DEXILANT [Concomitant]
     Active Substance: DEXLANSOPRAZOLE
  15. ORENITRAM [Concomitant]
     Active Substance: TREPROSTINIL

REACTIONS (6)
  - Death [Fatal]
  - Cardiac failure [None]
  - Fluid retention [None]
  - Dyspnoea [None]
  - Mental status changes [None]
  - Therapy cessation [None]

NARRATIVE: CASE EVENT DATE: 20240101
